FAERS Safety Report 19278222 (Version 1)
Quarter: 2021Q2

REPORT INFORMATION
  Report Type: Spontaneous
  Country: US (occurrence: US)
  Receive Date: 20210519
  Receipt Date: 20210519
  Transmission Date: 20210717
  Serious: Yes (Life-Threatening)
  Sender: FDA-Public Use
  Company Number: None

PATIENT
  Age: 90 Year
  Sex: Male
  Weight: 78.75 kg

DRUGS (6)
  1. METOPROLOL. [Concomitant]
     Active Substance: METOPROLOL
  2. FAMOTIDINE. [Concomitant]
     Active Substance: FAMOTIDINE
  3. FINASTERIDE. [Suspect]
     Active Substance: FINASTERIDE
     Indication: PROSTATOMEGALY
     Route: 048
  4. CARBIDOPA LEVODOPA [Concomitant]
     Active Substance: CARBIDOPA\LEVODOPA
  5. LISINOPRIL. [Concomitant]
     Active Substance: LISINOPRIL
  6. MENS 1 A DAY VITAMIN [Concomitant]

REACTIONS (10)
  - Intentional self-injury [None]
  - Middle insomnia [None]
  - Emotional disorder [None]
  - Depression [None]
  - Loss of personal independence in daily activities [None]
  - Soliloquy [None]
  - Homicidal ideation [None]
  - Suicidal ideation [None]
  - Aggression [None]
  - Anxiety [None]

NARRATIVE: CASE EVENT DATE: 20201201
